FAERS Safety Report 9717620 (Version 2)
Quarter: 2014Q2

REPORT INFORMATION
  Report Type: Spontaneous
  Country: US (occurrence: None)
  Receive Date: 20131122
  Receipt Date: 20140418
  Transmission Date: 20141212
  Serious: Yes (Other)
  Sender: FDA-Public Use
  Company Number: 2013-US-003145

PATIENT
  Age: 23 Year
  Sex: Female
  Weight: 55.3 kg

DRUGS (4)
  1. XYREM [Suspect]
     Indication: NARCOLEPSY
     Route: 048
     Dates: start: 20131016, end: 20131022
  2. XYREM [Suspect]
     Route: 048
     Dates: start: 20131016, end: 20131022
  3. ALBUTEROL (SALBUTAMOL SULFATE) [Concomitant]
  4. ADDERALL (AMFETAMINE ASPARTATE, AMFETAMINE SULFATE, DEXAMFETAMINE SACCHARATE, DEXAMFETAMINE SULFATE) [Concomitant]

REACTIONS (21)
  - Dehydration [None]
  - Blood pressure decreased [None]
  - Syncope [None]
  - Palpitations [None]
  - Loss of consciousness [None]
  - Insomnia [None]
  - Chest pain [None]
  - Dysarthria [None]
  - Asthma [None]
  - Somnolence [None]
  - Dizziness [None]
  - Tremor [None]
  - Fatigue [None]
  - Heart rate increased [None]
  - Vision blurred [None]
  - Nausea [None]
  - Dyspnoea [None]
  - Drug intolerance [None]
  - Visual acuity reduced [None]
  - Loss of consciousness [None]
  - Fall [None]
